FAERS Safety Report 6181773-7 (Version None)
Quarter: 2009Q2

REPORT INFORMATION
  Report Type: 
  Country: None (occurrence: None)
  Receive Date: 20090506
  Receipt Date: 20090422
  Transmission Date: 20091009
  Serious: Yes (Other)
  Sender: FDA-Public Use
  Company Number: NO-ROCHE-629207

PATIENT
  Age: 18 Year
  Sex: Female

DRUGS (1)
  1. ROACCUTAN [Suspect]
     Indication: ACNE
     Dosage: DOSE: STANDARD FERQUENCY: DAILY DRUG NAME ALSO GIVEN AS ^ISOTRETINOIN ORIFARM^
     Route: 048
     Dates: end: 20090401

REACTIONS (1)
  - OBSESSIVE-COMPULSIVE DISORDER [None]
